FAERS Safety Report 4620105-X (Version None)
Quarter: 2005Q1

REPORT INFORMATION
  Report Type: 
  Country: None (occurrence: None)
  Receive Date: 20050322
  Receipt Date: 20050322
  Transmission Date: 20050727
  Serious: Yes (Other)
  Sender: FDA-Public Use
  Company Number: None

PATIENT
  Age: 53 Year
  Sex: Female
  Weight: 90.7194 kg

DRUGS (1)
  1. CELEXA [Suspect]
     Indication: ANXIETY
     Dosage: 10 MG THEN UP TO 40 MG  ONCE DAILY AT NIGHT
     Dates: start: 20030701, end: 20050201

REACTIONS (15)
  - ANXIETY [None]
  - ATRIAL FIBRILLATION [None]
  - BALANCE DISORDER [None]
  - CHEST DISCOMFORT [None]
  - DYSKINESIA [None]
  - FEELING ABNORMAL [None]
  - HEART RATE IRREGULAR [None]
  - HOT FLUSH [None]
  - HYPERHIDROSIS [None]
  - MALAISE [None]
  - MENOPAUSAL SYMPTOMS [None]
  - MIGRAINE [None]
  - MUSCLE TWITCHING [None]
  - PANIC ATTACK [None]
  - TREMOR [None]
